FAERS Safety Report 16981608 (Version 1)
Quarter: 2019Q4

REPORT INFORMATION
  Report Type: Report from Study
  Country: US (occurrence: US)
  Receive Date: 20191101
  Receipt Date: 20191101
  Transmission Date: 20200122
  Serious: Yes (Other)
  Sender: FDA-Public Use
  Company Number: US-BEH-2019108583

PATIENT
  Age: 45 Year
  Sex: Female
  Weight: 84.35 kg

DRUGS (1)
  1. HAEGARDA [Suspect]
     Active Substance: HUMAN C1-ESTERASE INHIBITOR
     Indication: HEREDITARY ANGIOEDEMA
     Dosage: 1200 MILLIGRAM
     Route: 058
     Dates: start: 201806, end: 201807

REACTIONS (3)
  - Abdominal pain upper [Recovered/Resolved]
  - Blood urine present [Recovered/Resolved]
  - Hereditary angioedema [Recovered/Resolved]

NARRATIVE: CASE EVENT DATE: 201806
